FAERS Safety Report 15484074 (Version 1)
Quarter: 2018Q4

REPORT INFORMATION
  Report Type: Spontaneous
  Country: US (occurrence: US)
  Receive Date: 20181010
  Receipt Date: 20181010
  Transmission Date: 20190205
  Serious: No
  Sender: FDA-Public Use
  Company Number: None

PATIENT
  Age: 35 Year
  Sex: Female
  Weight: 76.5 kg

DRUGS (1)
  1. ESTRADIOL TRANSDERMAL SYSTEM, USP TWICE WEEKLY 0.1 MG PER DAY [Suspect]
     Active Substance: ESTRADIOL
     Indication: INFERTILITY
     Dosage: ?          QUANTITY:1 PATCH(ES);OTHER FREQUENCY:ONE EVERY TWO DAYS;?
     Route: 062
     Dates: start: 20180827, end: 20180902

REACTIONS (5)
  - Aphthous ulcer [None]
  - Fluid retention [None]
  - Depression [None]
  - Crying [None]
  - Gingival bleeding [None]

NARRATIVE: CASE EVENT DATE: 20180828
